FAERS Safety Report 4621545-5 (Version None)
Quarter: 2005Q1

REPORT INFORMATION
  Report Type: 
  Country: None (occurrence: None)
  Receive Date: 20050328
  Receipt Date: 20031125
  Transmission Date: 20050727
  Serious: No
  Sender: FDA-Public Use
  Company Number: 9941

PATIENT
  Age: 40 Year
  Sex: Female

DRUGS (2)
  1. METHOTREXATE [Suspect]
     Dosage: 7.5 MG
     Dates: start: 20030527, end: 20030527
  2. DICLOFENAC SODIUM [Concomitant]

REACTIONS (2)
  - BRONCHOSPASM [None]
  - EXANTHEM [None]
